FAERS Safety Report 6341800-0 (Version None)
Quarter: 2009Q3

REPORT INFORMATION
  Report Type: 
  Country: None (occurrence: None)
  Receive Date: 20090904
  Receipt Date: 20090826
  Transmission Date: 20100115
  Serious: Yes (Hospitalization)
  Sender: FDA-Public Use
  Company Number: DE-GENENTECH-288418

PATIENT
  Sex: Female

DRUGS (2)
  1. XOLAIR [Suspect]
     Indication: ASTHMA
     Dosage: 150 MG, UNK
     Route: 058
     Dates: start: 20090709, end: 20090709
  2. VIANI [Concomitant]
     Indication: DRUG USE FOR UNKNOWN INDICATION

REACTIONS (2)
  - ANAPHYLACTIC REACTION [None]
  - ASTHMA [None]
